FAERS Safety Report 19718403 (Version 1)
Quarter: 2021Q3

REPORT INFORMATION
  Report Type: Spontaneous
  Country: US (occurrence: US)
  Receive Date: 20210818
  Receipt Date: 20210818
  Transmission Date: 20211014
  Serious: No
  Sender: FDA-Public Use
  Company Number: None

PATIENT
  Sex: Female

DRUGS (1)
  1. CAPECITABINE 500MG TAB [Suspect]
     Active Substance: CAPECITABINE
     Indication: PANCREATIC CARCINOMA
     Dosage: 2 TABS BID PO ? 14 D ON THEN 7 D OFF
     Route: 048
     Dates: start: 20210729

REACTIONS (6)
  - Tongue movement disturbance [None]
  - Dyskinesia [None]
  - Movement disorder [None]
  - Speech disorder [None]
  - Therapy interrupted [None]
  - Brain injury [None]
